FAERS Safety Report 4313912-4 (Version None)
Quarter: 2004Q1

REPORT INFORMATION
  Report Type: 
  Country: None (occurrence: None)
  Receive Date: 20040305
  Receipt Date: 20040210
  Transmission Date: 20041129
  Serious: Yes (Other)
  Sender: FDA-Public Use
  Company Number: S20030219

PATIENT
  Age: 68 Year
  Sex: Female

DRUGS (1)
  1. KADIAN [Suspect]
     Indication: PAIN
     Dosage: 560 MG ORAL
     Route: 048

REACTIONS (5)
  - COMA [None]
  - CYANOSIS [None]
  - DRUG TOXICITY [None]
  - RESPIRATORY FAILURE [None]
  - SHOCK [None]
